FAERS Safety Report 4651972-1 (Version None)
Quarter: 2005Q2

REPORT INFORMATION
  Report Type: 
  Country: None (occurrence: None)
  Receive Date: 20050502
  Receipt Date: 20050502
  Transmission Date: 20051028
  Serious: Yes (Disabling, Other)
  Sender: FDA-Public Use
  Company Number: None

PATIENT
  Sex: Male

DRUGS (1)
  1. CORICIDIN [Suspect]
     Indication: INTENTIONAL MISUSE
     Dosage: ORAL
     Route: 048

REACTIONS (3)
  - DRUG DEPENDENCE [None]
  - NERVOUS SYSTEM DISORDER [None]
  - OVERDOSE [None]
